FAERS Safety Report 19802220 (Version 1)
Quarter: 2021Q3

REPORT INFORMATION
  Report Type: Spontaneous
  Country: DE (occurrence: DE)
  Receive Date: 20210908
  Receipt Date: 20210908
  Transmission Date: 20211014
  Serious: Yes (Hospitalization, Other)
  Sender: FDA-Public Use
  Company Number: DE-BAUSCH-BL-2021-029450

PATIENT
  Sex: Female
  Weight: 1.15 kg

DRUGS (2)
  1. VENLAFAXINE [Suspect]
     Active Substance: VENLAFAXINE HYDROCHLORIDE
     Indication: DEPRESSION
     Dosage: 150 (MG/D)
     Route: 065
     Dates: start: 20200507, end: 20201213
  2. INSULIN [Concomitant]
     Active Substance: INSULIN NOS
     Indication: GESTATIONAL DIABETES

REACTIONS (8)
  - Neonatal respiratory distress syndrome [Recovered/Resolved]
  - Bradycardia neonatal [Recovered/Resolved]
  - Selective eating disorder [Recovered/Resolved]
  - Temperature regulation disorder [Recovered/Resolved]
  - Oxygen saturation decreased [Recovered/Resolved]
  - Atrial septal defect [Unknown]
  - Neonatal seizure [Recovered/Resolved]
  - Foetal exposure during pregnancy [Unknown]

NARRATIVE: CASE EVENT DATE: 20201213
